FAERS Safety Report 7133142-0 (Version None)
Quarter: 2010Q4

REPORT INFORMATION
  Report Type: 
  Country: None (occurrence: None)
  Receive Date: 20101117
  Receipt Date: 20101103
  Transmission Date: 20110411
  Serious: Yes (Hospitalization, Other)
  Sender: FDA-Public Use
  Company Number: 2010AP002272

PATIENT
  Age: 80 Year
  Sex: Female

DRUGS (3)
  1. ALENDRONATE SODIUM [Suspect]
     Dosage: 70 MG;QW
  2. FERROUS SULFATE TAB [Suspect]
     Dosage: 300 MG;TID
  3. ASPIRIN [Suspect]
     Dosage: 81 MG;QD

REACTIONS (8)
  - BLOOD PRESSURE SYSTOLIC INCREASED [None]
  - DEEP VEIN THROMBOSIS [None]
  - DRUG INTERACTION [None]
  - HAEMATOCRIT DECREASED [None]
  - HAEMOGLOBIN DECREASED [None]
  - OESOPHAGEAL HAEMORRHAGE [None]
  - OESOPHAGEAL INJURY [None]
  - OESOPHAGEAL RUPTURE [None]
